FAERS Safety Report 4515131-5 (Version None)
Quarter: 2004Q4

REPORT INFORMATION
  Report Type: 
  Country: None (occurrence: None)
  Receive Date: 20041130
  Receipt Date: 20041130
  Transmission Date: 20050328
  Serious: Yes (Life-Threatening, Hospitalization, Disabling)
  Sender: FDA-Public Use
  Company Number: None

PATIENT
  Age: 12 Year
  Sex: Male
  Weight: 63.5036 kg

DRUGS (8)
  1. TORADOL [Suspect]
     Dosage: 30 MG  EVERY 6 HOURS INTRAVENOU
     Route: 042
     Dates: start: 20040929, end: 20041001
  2. MORPHINE [Concomitant]
  3. REGLAN [Concomitant]
  4. AMPICILLIN [Concomitant]
  5. GENTAMICIN [Concomitant]
  6. FLAGYL [Concomitant]
  7. TYLENOL (CAPLET) [Concomitant]
  8. TYLENOL W/ CODEINE [Concomitant]

REACTIONS (1)
  - DUODENAL ULCER [None]
